FAERS Safety Report 9415552 (Version 2)
Quarter: 2013Q3

REPORT INFORMATION
  Report Type: Spontaneous
  Country: JP (occurrence: JP)
  Receive Date: 20130723
  Receipt Date: 20130729
  Transmission Date: 20140515
  Serious: Yes (Hospitalization, Other)
  Sender: FDA-Public Use
  Company Number: JP-009507513-1304JPN006382

PATIENT
  Age: 74 Year
  Sex: Male
  Weight: 55 kg

DRUGS (2)
  1. ZETIA TABLETS 10MG [Suspect]
     Indication: DYSLIPIDAEMIA
     Dosage: 10 MG, QD
     Route: 048
     Dates: start: 201209, end: 20130408
  2. CONIEL [Concomitant]
     Dosage: 4 MG, QD
     Route: 048
     Dates: start: 2010

REACTIONS (3)
  - Gastric cancer [Unknown]
  - Parkinson^s disease [Unknown]
  - Rhabdomyolysis [Recovered/Resolved]
